FAERS Safety Report 12447623 (Version 1)
Quarter: 2016Q2

REPORT INFORMATION
  Report Type: Spontaneous
  Country: FR (occurrence: FR)
  Receive Date: 20160608
  Receipt Date: 20160608
  Transmission Date: 20160815
  Serious: Yes (Death, Other)
  Sender: FDA-Public Use
  Company Number: FR-BAXTER-2016BAX028202

PATIENT
  Age: 56 Year
  Sex: Female

DRUGS (17)
  1. UROMITEXAN 1 G/10 ML, SOLUTION INJECTABLE POUR PERFUSION EN FLACON [Suspect]
     Active Substance: MESNA
     Dosage: CONTINUOUS IV INFUSION OVER 24 HOURS
     Route: 041
  2. UROMITEXAN 1 G/10 ML, SOLUTION INJECTABLE POUR PERFUSION EN FLACON [Suspect]
     Active Substance: MESNA
     Dosage: CONTINUOUS IV INFUSION OVER 24 HOURS
     Route: 041
  3. PYOSTACINE [Suspect]
     Active Substance: PRISTINAMYCIN
     Indication: BACTERIAL TEST POSITIVE
     Route: 048
     Dates: end: 20160418
  4. OXALIPLATIN. [Suspect]
     Active Substance: OXALIPLATIN
     Indication: B-CELL LYMPHOMA
     Dosage: DHAP PROTOCOL
     Route: 065
     Dates: start: 20160302
  5. UROMITEXAN 1 G/10 ML, SOLUTION INJECTABLE POUR PERFUSION EN FLACON [Suspect]
     Active Substance: MESNA
     Indication: DRUG TOXICITY PROPHYLAXIS
     Route: 040
  6. DEXAMETHASONE. [Suspect]
     Active Substance: DEXAMETHASONE
     Dosage: DHAP PROTOCOL
     Route: 065
     Dates: start: 20160323
  7. MABTHERA [Suspect]
     Active Substance: RITUXIMAB
     Indication: B-CELL LYMPHOMA
     Dosage: CHEMOTHERAPY PROTOCOL R-NIMP; DAY1 OF A SECOND CHEMOTHERAPY
     Route: 042
  8. CORTANCYL [Suspect]
     Active Substance: PREDNISONE
     Indication: B-CELL LYMPHOMA
     Dosage: DAY1 OF A SECOND CHEMOTHERAPY; CHEMOTHERAPY PROTOCOL R-NIMP
     Route: 048
  9. DEXAMETHASONE. [Suspect]
     Active Substance: DEXAMETHASONE
     Indication: B-CELL LYMPHOMA
     Dosage: DHAP PROTOCOL
     Route: 065
     Dates: start: 20160302
  10. MITOXANTRONE TEVA 25 MG/12,5 ML, SOLUTION ? DILUER POUR PERFUSION [Suspect]
     Active Substance: MITOXANTRONE HYDROCHLORIDE
     Indication: B-CELL LYMPHOMA
     Dosage: CHEMOTHERAPY PROTOCOL R-NIMP; DAY1 OF A SECOND CHEMOTHERAPY
     Route: 042
  11. CYTARABINE. [Suspect]
     Active Substance: CYTARABINE
     Dosage: DHAP PROTOCOL
     Route: 065
     Dates: start: 20160323
  12. NAVELBINE [Suspect]
     Active Substance: VINORELBINE TARTRATE
     Indication: B-CELL LYMPHOMA
     Dosage: CHEMOTHERAPY PROTOCOL R-NIMP, DAY1 OF A SECOND CHEMOTHERAPY
     Route: 042
  13. CYTARABINE. [Suspect]
     Active Substance: CYTARABINE
     Indication: B-CELL LYMPHOMA
     Dosage: DHAP PROTOCOL
     Route: 065
     Dates: start: 20160302
  14. IFOSFAMIDE EG [Suspect]
     Active Substance: IFOSFAMIDE
     Indication: B-CELL LYMPHOMA
     Dosage: CONTINUOUS INFUSION ON 24 HOURS. CHEMOTHERAPY PROTOCOL R-NIMP, DAY1 OF A SECOND CHEMOTHERAPY
     Route: 041
  15. HALDOL DECANOATE [Suspect]
     Active Substance: HALOPERIDOL DECANOATE
     Indication: DRUG TOXICITY PROPHYLAXIS
     Dosage: ONCE DAILY EVERY 21 DAYS; LONG-STANDING TREATMENT. STARTED SEVERAL YEARS EARLIER
     Route: 030
  16. GRANESETRON B BRAUN [Suspect]
     Active Substance: GRANISETRON HYDROCHLORIDE
     Indication: PRODUCT USED FOR UNKNOWN INDICATION
     Route: 042
     Dates: end: 20160419
  17. OXALIPLATIN. [Suspect]
     Active Substance: OXALIPLATIN
     Dosage: DHAP PROTOCOL
     Route: 065
     Dates: start: 20160323

REACTIONS (7)
  - Toxic encephalopathy [Unknown]
  - Pleural effusion [Unknown]
  - Hyperthermia [Unknown]
  - Treatment failure [Unknown]
  - Oedema [Unknown]
  - Malignant neoplasm progression [Fatal]
  - Inflammation [Unknown]

NARRATIVE: CASE EVENT DATE: 20160411
